FAERS Safety Report 8396864-X (Version None)
Quarter: 2012Q1

REPORT INFORMATION
  Report Type: 
  Country: None (occurrence: None)
  Receive Date: 20120323
  Receipt Date: 20110315
  Transmission Date: 20120608
  Serious: Yes (Other)
  Sender: FDA-Public Use
  Company Number: 163-21880-11031963

PATIENT
  Age: 60 Year
  Sex: Male
  Weight: 115.2 kg

DRUGS (3)
  1. REVLIMID [Suspect]
     Indication: MULTIPLE MYELOMA
     Dosage: 25 MG, 1 IN 1 D, PO   10 MG, 1 IN 1 D, PO    15 MG, DAILY FOR 21 DAYS THEN 7 DAYS OFF, PO
     Route: 048
     Dates: start: 20070901, end: 20070101
  2. REVLIMID [Suspect]
     Indication: MULTIPLE MYELOMA
     Dosage: 25 MG, 1 IN 1 D, PO   10 MG, 1 IN 1 D, PO    15 MG, DAILY FOR 21 DAYS THEN 7 DAYS OFF, PO
     Route: 048
     Dates: start: 20071101, end: 20080101
  3. REVLIMID [Suspect]
     Indication: MULTIPLE MYELOMA
     Dosage: 25 MG, 1 IN 1 D, PO   10 MG, 1 IN 1 D, PO    15 MG, DAILY FOR 21 DAYS THEN 7 DAYS OFF, PO
     Route: 048
     Dates: start: 20081001

REACTIONS (1)
  - CATARACT [None]
